FAERS Safety Report 12982528 (Version 1)
Quarter: 2016Q4

REPORT INFORMATION
  Report Type: Report from Study
  Country: IN (occurrence: IN)
  Receive Date: 20161129
  Receipt Date: 20161129
  Transmission Date: 20170207
  Serious: Yes (Other)
  Sender: FDA-Public Use
  Company Number: IN-ROCHE-1860318

PATIENT
  Age: 67 Year
  Sex: Female

DRUGS (2)
  1. ALTEPLASE [Suspect]
     Active Substance: ALTEPLASE
     Indication: RETINAL HAEMORRHAGE
     Dosage: 12.5 MICROGRAM PER 0.1 ML
     Route: 065
  2. BEVACIZUMAB [Concomitant]
     Active Substance: BEVACIZUMAB
     Indication: RETINAL HAEMORRHAGE
     Dosage: SUBMACULAR  INJECTION
     Route: 065

REACTIONS (1)
  - Retinal haemorrhage [Unknown]
